FAERS Safety Report 11237097 (Version 1)
Quarter: 2015Q3

REPORT INFORMATION
  Report Type: Report from Study
  Country: US (occurrence: US)
  Receive Date: 20150703
  Receipt Date: 20150703
  Transmission Date: 20151125
  Serious: Yes (Life-Threatening, Hospitalization, Other)
  Sender: FDA-Public Use
  Company Number: US-PAR PHARMACEUTICAL, INC-2014SE52073

PATIENT

DRUGS (46)
  1. METOPROLOL TARTRATE. [Suspect]
     Active Substance: METOPROLOL TARTRATE
     Indication: ATRIAL FIBRILLATION
     Dosage: 75 MG, BID
     Route: 048
     Dates: start: 201309
  2. ZYRTEC [Concomitant]
     Active Substance: CETIRIZINE HYDROCHLORIDE
     Indication: HYPERSENSITIVITY
     Dosage: 10 MG, DAILY
     Route: 048
  3. ADVAIR DISKUS [Concomitant]
     Active Substance: FLUTICASONE PROPIONATE\SALMETEROL XINAFOATE
     Indication: CHRONIC OBSTRUCTIVE PULMONARY DISEASE
     Dosage: 500 MG 50 MG, BID
     Route: 055
     Dates: start: 2010
  4. ADVAIR DISKUS [Concomitant]
     Active Substance: FLUTICASONE PROPIONATE\SALMETEROL XINAFOATE
     Indication: ASTHMA
     Dosage: 500 MG 50 MG, BID
     Route: 055
     Dates: start: 2010
  5. THEOPH 24 [Concomitant]
     Indication: CHRONIC OBSTRUCTIVE PULMONARY DISEASE
     Dosage: 300 MG, TID
     Route: 048
  6. COLCHICINE. [Concomitant]
     Active Substance: COLCHICINE
     Indication: GOUT
     Dosage: 0.6 MG, PRN
     Route: 048
     Dates: start: 2009
  7. ACCOLATE [Suspect]
     Active Substance: ZAFIRLUKAST
     Indication: CHRONIC OBSTRUCTIVE PULMONARY DISEASE
  8. LASIX [Concomitant]
     Active Substance: FUROSEMIDE
     Indication: OEDEMA
     Dosage: 20 MG, DAILY
     Route: 048
     Dates: start: 2013
  9. NEURONTIN [Concomitant]
     Active Substance: GABAPENTIN
     Indication: FIBROMYALGIA
     Dosage: 300 MG, TID
     Route: 048
     Dates: start: 2004
  10. IRON [Concomitant]
     Active Substance: IRON
     Indication: SUPPLEMENTATION THERAPY
     Dosage: UNK, DAILY
     Route: 048
     Dates: start: 2013
  11. AMITRIPTYLINE [Concomitant]
     Active Substance: AMITRIPTYLINE
     Indication: SLEEP DISORDER
     Dosage: 25 MG, HS
     Route: 048
     Dates: start: 201502
  12. SYMBICORT [Suspect]
     Active Substance: BUDESONIDE\FORMOTEROL FUMARATE DIHYDRATE
     Indication: CHRONIC OBSTRUCTIVE PULMONARY DISEASE
  13. PREDNISONE. [Concomitant]
     Active Substance: PREDNISONE
     Indication: HYPERSENSITIVITY
     Dosage: 5 MG, DAILY
     Route: 048
  14. MAGNESIUM [Concomitant]
     Active Substance: MAGNESIUM
     Indication: BLOOD MAGNESIUM DECREASED
     Dosage: UNK, DAILY
     Route: 048
     Dates: start: 2013
  15. CALCIUM CITRATE VITAMIN D [Concomitant]
     Indication: SUPPLEMENTATION THERAPY
     Dosage: 600 MG, DAILY
     Route: 048
     Dates: start: 1992
  16. PREDNISONE. [Concomitant]
     Active Substance: PREDNISONE
     Indication: LUNG INFECTION
     Dosage: 40 MG, DAILY
     Route: 048
  17. XANAX [Concomitant]
     Active Substance: ALPRAZOLAM
     Dosage: 1 MG, HS
     Route: 048
     Dates: start: 2013
  18. COLCHICINE. [Concomitant]
     Active Substance: COLCHICINE
     Indication: ARTHRITIS
  19. TIZANIDINE. [Concomitant]
     Active Substance: TIZANIDINE
     Dosage: 4 MG, PRN
     Route: 048
     Dates: start: 201502
  20. ACCOLATE [Suspect]
     Active Substance: ZAFIRLUKAST
     Indication: DYSPNOEA
  21. NEXIUM [Suspect]
     Active Substance: ESOMEPRAZOLE MAGNESIUM
     Indication: GASTROOESOPHAGEAL REFLUX DISEASE
     Dosage: 40 MG, QD
     Route: 048
     Dates: start: 2001
  22. PREDNISONE. [Concomitant]
     Active Substance: PREDNISONE
     Indication: DYSPNOEA
  23. XANAX [Concomitant]
     Active Substance: ALPRAZOLAM
     Indication: SLEEP DISORDER
     Dosage: 2 MG, HS
     Route: 048
     Dates: start: 201309
  24. VENLAFAXINE [Concomitant]
     Active Substance: VENLAFAXINE HYDROCHLORIDE
     Indication: DEPRESSION
     Dosage: 75 MG, BID
     Route: 048
     Dates: start: 201309
  25. SOMA [Concomitant]
     Active Substance: CARISOPRODOL
     Indication: FIBROMYALGIA
     Dosage: 250 MG, HS
     Route: 048
     Dates: start: 201309
  26. VOLTAREN [Concomitant]
     Active Substance: DICLOFENAC SODIUM
     Indication: ARTHRALGIA
     Dosage: 1 %, PRN
     Route: 061
  27. AMOXICILLIN. [Concomitant]
     Active Substance: AMOXICILLIN
     Indication: LUNG INFECTION
     Dosage: 650 MG, BID
     Route: 048
  28. THEOPH 24 [Concomitant]
     Indication: ASTHMA
  29. COMBIVENT [Concomitant]
     Active Substance: ALBUTEROL SULFATE\IPRATROPIUM BROMIDE
     Indication: INHALATION THERAPY
     Dosage: UNK, UNKNOWN
     Route: 055
     Dates: start: 1995
  30. TIZANIDINE. [Concomitant]
     Active Substance: TIZANIDINE
     Indication: MYALGIA
     Dosage: 4 MG, HS
     Route: 048
     Dates: start: 201502
  31. ACCOLATE [Suspect]
     Active Substance: ZAFIRLUKAST
     Indication: ASTHMA
     Dosage: 20 MG, BID
     Route: 048
     Dates: start: 1995
  32. SYMBICORT [Suspect]
     Active Substance: BUDESONIDE\FORMOTEROL FUMARATE DIHYDRATE
     Indication: EMPHYSEMA
  33. WARFARIN [Concomitant]
     Active Substance: WARFARIN
     Indication: THROMBOSIS
     Dosage: 7.5 MG, DAILY
     Route: 048
     Dates: start: 201309
  34. NEURONTIN [Concomitant]
     Active Substance: GABAPENTIN
     Dosage: 100 MG, TID
     Route: 048
     Dates: start: 201505
  35. SPIRIVA [Concomitant]
     Active Substance: TIOTROPIUM BROMIDE MONOHYDRATE
     Indication: DYSPNOEA
     Dosage: 18 MG, DAILY
     Route: 055
     Dates: start: 2012
  36. AMBIEN [Concomitant]
     Active Substance: ZOLPIDEM TARTRATE
     Indication: SLEEP DISORDER
     Dosage: 10 MG, HS
     Route: 048
     Dates: start: 2013
  37. SYMBICORT [Suspect]
     Active Substance: BUDESONIDE\FORMOTEROL FUMARATE DIHYDRATE
     Indication: ASTHMA
     Dosage: 160 / 4.5 MCG, TWO TIMES DAILY
     Route: 055
     Dates: start: 2010
  38. METOPROLOL TARTRATE. [Suspect]
     Active Substance: METOPROLOL TARTRATE
     Indication: ARRHYTHMIA
     Dosage: 75 MG, DAILY
     Route: 048
     Dates: start: 2013
  39. WARFARIN [Concomitant]
     Active Substance: WARFARIN
     Indication: ANTICOAGULANT THERAPY
     Dosage: 10 MG, TIWK
     Route: 048
     Dates: start: 2013
  40. WARFARIN [Concomitant]
     Active Substance: WARFARIN
     Dosage: 5 MG, WEEKLY
     Route: 048
     Dates: start: 2013
  41. IRON [Concomitant]
     Active Substance: IRON
     Indication: BLOOD IRON DECREASED
  42. FISH OIL [Concomitant]
     Active Substance: FISH OIL
     Indication: SUPPLEMENTATION THERAPY
     Dosage: 1000 MG, BID
     Route: 048
     Dates: start: 2013
  43. FISH OIL [Concomitant]
     Active Substance: FISH OIL
     Indication: BLOOD CHOLESTEROL ABNORMAL
  44. LYRICA [Concomitant]
     Active Substance: PREGABALIN
     Indication: PRODUCT USED FOR UNKNOWN INDICATION
     Dosage: UNK, UNKNOWN
     Route: 065
  45. ACIDOPHILUS                        /00079701/ [Concomitant]
     Indication: BOWEL MOVEMENT IRREGULARITY
     Dosage: TWO TIMES DAILY
     Route: 048
     Dates: start: 2013
  46. CELEXA [Concomitant]
     Active Substance: CITALOPRAM HYDROBROMIDE
     Indication: DEPRESSION
     Dosage: 20 MG, DAILY
     Route: 048
     Dates: start: 201504

REACTIONS (42)
  - Precancerous cells present [Unknown]
  - Dyspnoea [Unknown]
  - White blood cell count increased [Unknown]
  - Osteoarthritis [Not Recovered/Not Resolved]
  - Diarrhoea [Unknown]
  - Depression [Unknown]
  - Spinal compression fracture [Unknown]
  - Paralysis [Unknown]
  - Weight increased [Unknown]
  - Asthenia [Unknown]
  - Colitis [Recovered/Resolved]
  - Hypergammaglobulinaemia benign monoclonal [Unknown]
  - Heart rate irregular [Unknown]
  - Lung infection [Unknown]
  - Body height decreased [Unknown]
  - Blood iron decreased [Unknown]
  - Atrial fibrillation [Unknown]
  - Blood magnesium decreased [Unknown]
  - Dysphagia [Unknown]
  - Disturbance in attention [Unknown]
  - Organ failure [Unknown]
  - Generalised oedema [Unknown]
  - Aspiration [Unknown]
  - Head injury [Unknown]
  - Memory impairment [Unknown]
  - Malaise [Unknown]
  - Fall [Unknown]
  - Vessel puncture site haematoma [Unknown]
  - Speech disorder [Unknown]
  - Apparent death [Recovered/Resolved]
  - Pulmonary thrombosis [Unknown]
  - Spinal column stenosis [Unknown]
  - Scar [Unknown]
  - Metabolic disorder [Unknown]
  - Emphysema [Unknown]
  - Time perception altered [Unknown]
  - Arterial occlusive disease [Unknown]
  - Exostosis [Unknown]
  - Choking [Unknown]
  - Fatigue [Unknown]
  - Drug ineffective [Unknown]
  - Product quality issue [Unknown]

NARRATIVE: CASE EVENT DATE: 2011
